FAERS Safety Report 8556108-2 (Version None)
Quarter: 2012Q3

REPORT INFORMATION
  Report Type: 
  Country: None (occurrence: None)
  Receive Date: 20120801
  Receipt Date: 20120725
  Transmission Date: 20120928
  Serious: Yes (Other)
  Sender: FDA-Public Use
  Company Number: US-JNJFOC-20120704481

PATIENT
  Age: 34 Year
  Sex: Male

DRUGS (2)
  1. NUCYNTA ER [Suspect]
     Indication: ANALGESIC THERAPY
     Dosage: TWICE PER DAY
     Route: 048
     Dates: end: 20120101
  2. CYMBALTA [Suspect]
     Indication: PRODUCT USED FOR UNKNOWN INDICATION
     Route: 048

REACTIONS (1)
  - SEROTONIN SYNDROME [None]
